FAERS Safety Report 7282940-1 (Version None)
Quarter: 2011Q1

REPORT INFORMATION
  Report Type: 
  Country: None (occurrence: None)
  Receive Date: 20110209
  Receipt Date: 20110202
  Transmission Date: 20110831
  Serious: Yes (Life-Threatening, Other)
  Sender: FDA-Public Use
  Company Number: CL-JNJFOC-20110106801

PATIENT
  Age: 71 Year
  Sex: Male

DRUGS (2)
  1. HALOPERIDOL [Suspect]
     Indication: PSYCHOMOTOR HYPERACTIVITY
     Route: 040
  2. OLANZAPINE [Suspect]
     Indication: PSYCHOMOTOR HYPERACTIVITY
     Route: 030

REACTIONS (2)
  - OBSTRUCTIVE AIRWAYS DISORDER [None]
  - INCORRECT ROUTE OF DRUG ADMINISTRATION [None]
